FAERS Safety Report 25602403 (Version 1)
Quarter: 2025Q3

REPORT INFORMATION
  Report Type: Spontaneous
  Country: EU (occurrence: EU)
  Receive Date: 20250724
  Receipt Date: 20250724
  Transmission Date: 20251020
  Serious: Yes (Other)
  Sender: MYLAN
  Company Number: None

PATIENT
  Age: 42 Year
  Sex: Female

DRUGS (20)
  1. PREDNISONE [Suspect]
     Active Substance: PREDNISONE
     Indication: Rheumatoid arthritis
     Dosage: 1.5 DOSAGE FORM, QD (1.5 TABLETS PER DAY FOR 3 DAYS)
     Route: 048
     Dates: start: 2020
  2. PREDNISONE [Suspect]
     Active Substance: PREDNISONE
     Dosage: 1.5 DOSAGE FORM, QD (1.5 TABLETS PER DAY FOR 3 DAYS)
     Dates: start: 2020
  3. PREDNISONE [Suspect]
     Active Substance: PREDNISONE
     Dosage: 1.5 DOSAGE FORM, QD (1.5 TABLETS PER DAY FOR 3 DAYS)
     Dates: start: 2020
  4. PREDNISONE [Suspect]
     Active Substance: PREDNISONE
     Dosage: 1.5 DOSAGE FORM, QD (1.5 TABLETS PER DAY FOR 3 DAYS)
     Route: 048
     Dates: start: 2020
  5. PREDNISONE [Suspect]
     Active Substance: PREDNISONE
     Dosage: 1 DOSAGE FORM, QD (THEN 1 TABLET PER DAY FOR 3 DAYS)
     Route: 048
     Dates: start: 2020
  6. PREDNISONE [Suspect]
     Active Substance: PREDNISONE
     Dosage: 1 DOSAGE FORM, QD (THEN 1 TABLET PER DAY FOR 3 DAYS)
     Dates: start: 2020
  7. PREDNISONE [Suspect]
     Active Substance: PREDNISONE
     Dosage: 1 DOSAGE FORM, QD (THEN 1 TABLET PER DAY FOR 3 DAYS)
     Dates: start: 2020
  8. PREDNISONE [Suspect]
     Active Substance: PREDNISONE
     Dosage: 1 DOSAGE FORM, QD (THEN 1 TABLET PER DAY FOR 3 DAYS)
     Route: 048
     Dates: start: 2020
  9. PREDNISONE [Suspect]
     Active Substance: PREDNISONE
     Dosage: 0.5 DOSAGE FORM, QD (THEN 1/2 TABLET PER DAY FOR 3 DAYS)
     Route: 048
     Dates: start: 2020
  10. PREDNISONE [Suspect]
     Active Substance: PREDNISONE
     Dosage: 0.5 DOSAGE FORM, QD (THEN 1/2 TABLET PER DAY FOR 3 DAYS)
     Route: 048
     Dates: start: 2020
  11. PREDNISONE [Suspect]
     Active Substance: PREDNISONE
     Dosage: 0.5 DOSAGE FORM, QD (THEN 1/2 TABLET PER DAY FOR 3 DAYS)
     Dates: start: 2020
  12. PREDNISONE [Suspect]
     Active Substance: PREDNISONE
     Dosage: 0.5 DOSAGE FORM, QD (THEN 1/2 TABLET PER DAY FOR 3 DAYS)
     Dates: start: 2020
  13. ORENCIA [Suspect]
     Active Substance: ABATACEPT
     Indication: Rheumatoid arthritis
     Dosage: 125 MILLIGRAM, QW
     Dates: start: 202405
  14. ORENCIA [Suspect]
     Active Substance: ABATACEPT
     Dosage: 125 MILLIGRAM, QW
     Route: 042
     Dates: start: 202405
  15. ORENCIA [Suspect]
     Active Substance: ABATACEPT
     Dosage: 125 MILLIGRAM, QW
     Route: 042
     Dates: start: 202405
  16. ORENCIA [Suspect]
     Active Substance: ABATACEPT
     Dosage: 125 MILLIGRAM, QW
     Dates: start: 202405
  17. ARAVA [Suspect]
     Active Substance: LEFLUNOMIDE
     Indication: Rheumatoid arthritis
     Dosage: 20 MILLIGRAM, QD
     Dates: start: 202111
  18. ARAVA [Suspect]
     Active Substance: LEFLUNOMIDE
     Dosage: 20 MILLIGRAM, QD
     Route: 048
     Dates: start: 202111
  19. ARAVA [Suspect]
     Active Substance: LEFLUNOMIDE
     Dosage: 20 MILLIGRAM, QD
     Route: 048
     Dates: start: 202111
  20. ARAVA [Suspect]
     Active Substance: LEFLUNOMIDE
     Dosage: 20 MILLIGRAM, QD
     Dates: start: 202111

REACTIONS (1)
  - Foot fracture [Recovering/Resolving]

NARRATIVE: CASE EVENT DATE: 20240901
